FAERS Safety Report 12617551 (Version 1)
Quarter: 2016Q3

REPORT INFORMATION
  Report Type: Spontaneous
  Country: US (occurrence: None)
  Receive Date: 20160802
  Receipt Date: 20160802
  Transmission Date: 20161109
  Serious: No
  Sender: FDA-Public Use
  Company Number: None

PATIENT

DRUGS (2)
  1. NIZORAL [Suspect]
     Active Substance: KETOCONAZOLE
     Route: 048
  2. DOXYCYCLINE. [Suspect]
     Active Substance: DOXYCYCLINE
     Route: 048

REACTIONS (6)
  - Helicobacter infection [None]
  - Drug interaction [None]
  - Abdominal pain [None]
  - Gastric cancer stage IV [None]
  - Chest pain [None]
  - Vomiting [None]
